FAERS Safety Report 4514655-4 (Version None)
Quarter: 2004Q4

REPORT INFORMATION
  Report Type: 
  Country: None (occurrence: None)
  Receive Date: 20040928
  Receipt Date: 20030915
  Transmission Date: 20050328
  Serious: Yes (Death, Other)
  Sender: FDA-Public Use
  Company Number: PHEH2003US08483

PATIENT
  Age: 42 Year
  Sex: Male

DRUGS (2)
  1. VOLTAREN [Suspect]
     Dosage: FOR 6 DAYS
  2. SKELAXIN [Concomitant]

REACTIONS (1)
  - HEPATIC FAILURE [None]
